FAERS Safety Report 6388459-4 (Version None)
Quarter: 2009Q4

REPORT INFORMATION
  Report Type: 
  Country: None (occurrence: None)
  Receive Date: 20091005
  Receipt Date: 20090929
  Transmission Date: 20100525
  Serious: Yes (Other)
  Sender: FDA-Public Use
  Company Number: A0807256A

PATIENT
  Age: 56 Year
  Sex: Female

DRUGS (7)
  1. LAMOTRIGINE [Suspect]
     Dosage: 25MG PER DAY
     Dates: start: 20090608, end: 20090910
  2. KLONOPIN [Concomitant]
  3. LYRICA [Concomitant]
  4. ANTIBIOTICS [Concomitant]
  5. AMBIEN [Concomitant]
  6. VICODIN [Concomitant]
  7. NAMENDA [Concomitant]

REACTIONS (14)
  - CONDITION AGGRAVATED [None]
  - DECREASED APPETITE [None]
  - DEPRESSION [None]
  - DIZZINESS [None]
  - EMOTIONAL DISORDER [None]
  - FATIGUE [None]
  - HALLUCINATION [None]
  - INSOMNIA [None]
  - LOSS OF CONSCIOUSNESS [None]
  - NIGHTMARE [None]
  - SOMNOLENCE [None]
  - STRESS [None]
  - SUICIDE ATTEMPT [None]
  - TREATMENT NONCOMPLIANCE [None]
